FAERS Safety Report 15932455 (Version 5)
Quarter: 2022Q3

REPORT INFORMATION
  Report Type: Report from Study
  Country: KR (occurrence: KR)
  Receive Date: 20190207
  Receipt Date: 20220809
  Transmission Date: 20221027
  Serious: Yes (Other)
  Sender: FDA-Public Use
  Company Number: KR-BRISTOL-MYERS SQUIBB COMPANY-BMS-2018-116846

PATIENT
  Age: 47 Year
  Sex: Female
  Weight: 42 kg

DRUGS (20)
  1. OPDIVO [Suspect]
     Active Substance: NIVOLUMAB
     Indication: Renal cell carcinoma
     Dosage: 1 DOSAGE FORM= 150 (UNITS UNSPECIFIED) Q2WK
     Route: 041
     Dates: start: 20180914, end: 20180928
  2. OPDIVO [Suspect]
     Active Substance: NIVOLUMAB
     Dosage: 1 DOSAGE FORM (140 UNITS UNSPECIFIED)
     Route: 065
     Dates: start: 20181013, end: 20181013
  3. OPDIVO [Suspect]
     Active Substance: NIVOLUMAB
     Dosage: 3 MILLIGRAM/KILOGRAM
     Route: 065
     Dates: start: 20180914, end: 20181013
  4. CHLORPHENIRAMINE MALEATE [Concomitant]
     Active Substance: CHLORPHENIRAMINE MALEATE
     Indication: Transfusion
     Dosage: 4 MILLIGRAM
     Route: 042
     Dates: start: 20180914, end: 20180915
  5. CHLORPHENIRAMINE MALEATE [Concomitant]
     Active Substance: CHLORPHENIRAMINE MALEATE
     Dosage: 1 DOSAGE FORM=AMPOULE
     Route: 042
     Dates: start: 20180920, end: 20180920
  6. CHLORPHENIRAMINE MALEATE [Concomitant]
     Active Substance: CHLORPHENIRAMINE MALEATE
     Dosage: 1 DOSAGE FORM=AMPOULE
     Route: 042
     Dates: start: 20181005, end: 20181005
  7. ULTRACET [Concomitant]
     Active Substance: ACETAMINOPHEN\TRAMADOL HYDROCHLORIDE
     Indication: Analgesic therapy
     Dosage: 2 DOSAGE FORM= TABLET
     Route: 048
     Dates: start: 20180914
  8. METHYLCOBALAMIN [Concomitant]
     Active Substance: METHYLCOBALAMIN
     Indication: Neuralgia
     Dosage: 1 DOSAGE FORM= TABLET
     Route: 048
     Dates: start: 20180914
  9. FOLIC ACID [Concomitant]
     Active Substance: FOLIC ACID
     Indication: Folate deficiency
     Dosage: 1 DOSAGE FORM= TABLET
     Route: 048
     Dates: start: 20180914
  10. MEPERIDINE [Concomitant]
     Active Substance: MEPERIDINE
     Indication: Analgesic therapy
     Dosage: 1 DOSAGE FORM=AMPOULE
     Route: 042
     Dates: start: 20180914, end: 20180914
  11. ALDACTONE [Concomitant]
     Active Substance: SPIRONOLACTONE
     Indication: Ascites
     Dosage: 1 DOSAGE FORM=TABLET
     Route: 048
     Dates: start: 20180914, end: 20180916
  12. ALDACTONE [Concomitant]
     Active Substance: SPIRONOLACTONE
     Dosage: 4 DOSAGE FORM=TABLET
     Route: 048
     Dates: start: 20180917
  13. ALDACTONE [Concomitant]
     Active Substance: SPIRONOLACTONE
     Dosage: 4 DOSAGE FORM=TABLET
     Route: 048
     Dates: start: 20181005, end: 20181005
  14. PROPACETAMOL HYDROCHLORIDE [Concomitant]
     Active Substance: PROPACETAMOL HYDROCHLORIDE
     Indication: Pyrexia
     Dosage: 1 DOSAGE FORM=VIAL
     Route: 042
     Dates: start: 20180915, end: 20180916
  15. DIABEX [Concomitant]
     Active Substance: METFORMIN HYDROCHLORIDE
     Indication: Blood glucose abnormal
     Dosage: 1 DOSAGE FORM=TABLET
     Route: 048
     Dates: start: 20180914
  16. LASIX [Concomitant]
     Active Substance: FUROSEMIDE
     Indication: Ascites
     Dosage: 1 DOSAGE FORM=TABLET
     Route: 048
     Dates: start: 20180917
  17. SK ALBUMIN [Concomitant]
     Indication: Paracentesis
     Dosage: 1 DOSAGE FORM=BOTTLE
     Route: 042
     Dates: start: 20180917, end: 20180917
  18. SK ALBUMIN [Concomitant]
     Dosage: 1 DOSAGE FORM=BOTTLE
     Route: 042
     Dates: start: 20180928, end: 20180928
  19. SK ALBUMIN [Concomitant]
     Dosage: 1 DOSAGE FORM
     Route: 042
     Dates: start: 20181013, end: 20181013
  20. DARBEPOETIN ALFA [Concomitant]
     Active Substance: DARBEPOETIN ALFA
     Indication: Anaemia
     Dosage: 360 MICROGRAM
     Route: 058
     Dates: start: 20180920, end: 20180920

REACTIONS (4)
  - Thrombocytopenia [Not Recovered/Not Resolved]
  - Malignant neoplasm progression [Not Recovered/Not Resolved]
  - Pyrexia [Recovered/Resolved]
  - Asthenia [Not Recovered/Not Resolved]

NARRATIVE: CASE EVENT DATE: 20180914
